FAERS Safety Report 6408994-X (Version None)
Quarter: 2009Q4

REPORT INFORMATION
  Report Type: 
  Country: None (occurrence: None)
  Receive Date: 20091019
  Receipt Date: 20091019
  Transmission Date: 20100525
  Serious: Yes (Other)
  Sender: FDA-Public Use
  Company Number: None

PATIENT
  Age: 66 Year
  Sex: Male
  Weight: 88.4514 kg

DRUGS (1)
  1. POTASSIUM CITRATE TABLET - ORAL 1080 MG - 10 MEQRIS RISING PHARM [Suspect]
     Indication: BLOOD URIC ACID INCREASED
     Dosage: 1 TABLET TWICE DAILY PO
     Route: 048
     Dates: start: 20090820, end: 20090927

REACTIONS (6)
  - ABDOMINAL PAIN [None]
  - DISTURBANCE IN ATTENTION [None]
  - DRUG INEFFECTIVE [None]
  - FATIGUE [None]
  - HAEMATURIA [None]
  - URINE OUTPUT DECREASED [None]
